FAERS Safety Report 24039490 (Version 1)
Quarter: 2024Q3

REPORT INFORMATION
  Report Type: Spontaneous
  Country: US (occurrence: US)
  Receive Date: 20240702
  Receipt Date: 20240702
  Transmission Date: 20241017
  Serious: No
  Sender: SANOFI AVENTIS
  Company Number: US-SA-2024SA184154

PATIENT
  Age: 46 Year
  Sex: Female

DRUGS (1)
  1. DUPIXENT [Suspect]
     Active Substance: DUPILUMAB
     Indication: Eczema
     Dosage: UNK, QOW
     Route: 058
     Dates: start: 202403

REACTIONS (7)
  - Scab [Unknown]
  - Eye discharge [Unknown]
  - Condition aggravated [Unknown]
  - Visual impairment [Unknown]
  - Lacrimation increased [Unknown]
  - Dry eye [Unknown]
  - Eczema [Unknown]

NARRATIVE: CASE EVENT DATE: 20240101
